FAERS Safety Report 9562284 (Version 1)
Quarter: 2013Q3

REPORT INFORMATION
  Report Type: Spontaneous
  Country: US (occurrence: US)
  Receive Date: 20130927
  Receipt Date: 20130927
  Transmission Date: 20140515
  Serious: No
  Sender: FDA-Public Use
  Company Number: US-GLAXOSMITHKLINE-A1039427A

PATIENT
  Sex: Female

DRUGS (2)
  1. MEKINIST [Suspect]
     Indication: PRODUCT USED FOR UNKNOWN INDICATION
  2. TAFINLAR [Suspect]
     Indication: PRODUCT USED FOR UNKNOWN INDICATION

REACTIONS (8)
  - Face oedema [Unknown]
  - Pyrexia [Unknown]
  - Chills [Unknown]
  - Migraine [Unknown]
  - Epistaxis [Unknown]
  - Stomatitis [Unknown]
  - Nausea [Unknown]
  - Vomiting [Unknown]
